FAERS Safety Report 9802044 (Version 1)
Quarter: 2014Q1

REPORT INFORMATION
  Report Type: Spontaneous
  Country: US (occurrence: US)
  Receive Date: 20140107
  Receipt Date: 20140107
  Transmission Date: 20141002
  Serious: No
  Sender: FDA-Public Use
  Company Number: US-BIOGENIDEC-2013BI123897

PATIENT
  Age: 43 Year
  Sex: Female

DRUGS (7)
  1. TECFIDERA [Suspect]
     Indication: PRODUCT USED FOR UNKNOWN INDICATION
     Route: 048
  2. TECFIDERA [Suspect]
     Indication: PRODUCT USED FOR UNKNOWN INDICATION
     Route: 048
  3. GLUCOSAMINE [Concomitant]
     Route: 048
  4. PEPCID [Concomitant]
     Route: 048
  5. MULTIVITAMIN [Concomitant]
     Route: 048
  6. VITAMIN D3 [Concomitant]
     Route: 048
  7. IBUPROFEN [Concomitant]
     Route: 048

REACTIONS (3)
  - Gastrointestinal sounds abnormal [Unknown]
  - Flushing [Unknown]
  - Erythema [Unknown]
